FAERS Safety Report 10956847 (Version 2)
Quarter: 2015Q2

REPORT INFORMATION
  Report Type: Spontaneous
  Country: FR (occurrence: FR)
  Receive Date: 20150326
  Receipt Date: 20150519
  Transmission Date: 20150821
  Serious: Yes (Hospitalization)
  Sender: FDA-Public Use
  Company Number: FR-SA-2015SA035939

PATIENT
  Age: 41 Year
  Sex: Male

DRUGS (8)
  1. METHYLPREDNISOLONE. [Suspect]
     Active Substance: METHYLPREDNISOLONE
     Dosage: 4 DOSES IN TOTAL ?7, 8 ,10, 11 FEB 2015
     Route: 042
     Dates: start: 20150207, end: 20150208
  2. NEFOPAM HYDROCHLORIDE [Suspect]
     Active Substance: NEFOPAM HYDROCHLORIDE
     Route: 065
     Dates: start: 20150204, end: 20150211
  3. KETOPROFEN. [Suspect]
     Active Substance: KETOPROFEN
     Route: 042
     Dates: start: 20150204, end: 20150211
  4. PANTOPRAZOLE [Suspect]
     Active Substance: PANTOPRAZOLE SODIUM
     Route: 042
     Dates: start: 20150206, end: 20150211
  5. OXYNORMORO [Suspect]
     Active Substance: OXYCODONE
     Route: 048
     Dates: start: 20150205, end: 20150210
  6. LOVENOX [Suspect]
     Active Substance: ENOXAPARIN SODIUM
     Route: 058
     Dates: start: 20150207, end: 20150211
  7. OXYCONTIN [Suspect]
     Active Substance: OXYCODONE HYDROCHLORIDE
     Route: 048
     Dates: start: 20150206, end: 20150210
  8. METHYLPREDNISOLONE. [Suspect]
     Active Substance: METHYLPREDNISOLONE
     Dosage: 4 DOSES IN TOTAL ?7, 8 ,10, 11 FEB 2015
     Route: 042
     Dates: start: 20150210, end: 20150211

REACTIONS (2)
  - Posterior reversible encephalopathy syndrome [Recovered/Resolved]
  - Subarachnoid haemorrhage [Recovered/Resolved]

NARRATIVE: CASE EVENT DATE: 20150211
